FAERS Safety Report 13755927 (Version 2)
Quarter: 2017Q4

REPORT INFORMATION
  Report Type: Report from Study
  Country: AR (occurrence: AR)
  Receive Date: 20170714
  Receipt Date: 20171009
  Transmission Date: 20180320
  Serious: Yes (Death, Hospitalization)
  Sender: FDA-Public Use
  Company Number: PHHY2017AR103854

PATIENT
  Sex: Male

DRUGS (1)
  1. ENTRESTO [Suspect]
     Active Substance: SACUBITRIL\VALSARTAN
     Indication: CARDIAC FAILURE CHRONIC
     Dosage: 100 MG, (FREQUENCY REPORTED AS 2)
     Route: 065
     Dates: start: 201702

REACTIONS (3)
  - Pulmonary oedema [Fatal]
  - Cardio-respiratory arrest [Fatal]
  - Dyspnoea [Unknown]
